FAERS Safety Report 23919620 (Version 1)
Quarter: 2024Q2

REPORT INFORMATION
  Report Type: Spontaneous
  Country: ES (occurrence: ES)
  Receive Date: 20240530
  Receipt Date: 20240530
  Transmission Date: 20240716
  Serious: Yes (Hospitalization, Other)
  Sender: FDA-Public Use
  Company Number: ES-BRISTOL-MYERS SQUIBB COMPANY-2024-084585

PATIENT
  Age: 50 Year
  Sex: Male

DRUGS (2)
  1. OPDIVO [Suspect]
     Active Substance: NIVOLUMAB
     Indication: Non-small cell lung cancer metastatic
  2. YERVOY [Suspect]
     Active Substance: IPILIMUMAB
     Indication: Non-small cell lung cancer metastatic

REACTIONS (7)
  - Pyrexia [Unknown]
  - Dyspnoea [Unknown]
  - Pulmonary embolism [Unknown]
  - Diabetic ketoacidosis [Unknown]
  - Type 1 diabetes mellitus [Unknown]
  - Arthritis reactive [Unknown]
  - Dermatitis psoriasiform [Unknown]
